FAERS Safety Report 24722592 (Version 1)
Quarter: 2024Q4

REPORT INFORMATION
  Report Type: Report from Study
  Country: US (occurrence: US)
  Receive Date: 20241211
  Receipt Date: 20241211
  Transmission Date: 20250115
  Serious: Yes (Hospitalization)
  Sender: ABBVIE
  Company Number: US-ABBVIE-5993959

PATIENT
  Age: 17 Year
  Sex: Male

DRUGS (2)
  1. RINVOQ [Suspect]
     Active Substance: UPADACITINIB
     Indication: Eczema
     Dosage: LAST ADMIN DATE: 2024
     Route: 048
     Dates: start: 20240812
  2. RINVOQ [Suspect]
     Active Substance: UPADACITINIB
     Indication: Eczema
     Dosage: FORM STRENGTH: 30 MG
     Route: 048
     Dates: start: 202411

REACTIONS (8)
  - Staphylococcal infection [Recovered/Resolved]
  - Secretion discharge [Not Recovered/Not Resolved]
  - Skin ulcer [Not Recovered/Not Resolved]
  - Gait inability [Unknown]
  - Loss of personal independence in daily activities [Unknown]
  - Blister [Not Recovered/Not Resolved]
  - Drug ineffective [Unknown]
  - Eye pruritus [Unknown]

NARRATIVE: CASE EVENT DATE: 20240101
